FAERS Safety Report 7139601-9 (Version None)
Quarter: 2010Q4

REPORT INFORMATION
  Report Type: 
  Country: None (occurrence: None)
  Receive Date: 20101207
  Receipt Date: 20101115
  Transmission Date: 20110411
  Serious: Yes (Hospitalization, Other)
  Sender: FDA-Public Use
  Company Number: NL-AMGEN-NLDSP2010005541

PATIENT

DRUGS (1)
  1. ENBREL [Suspect]
     Dosage: 50 MG, WEEKLY
     Dates: start: 20100902

REACTIONS (1)
  - MYOCARDIAL INFARCTION [None]
